FAERS Safety Report 9551998 (Version 1)
Quarter: 2013Q3

REPORT INFORMATION
  Report Type: Report from Study
  Country: JP (occurrence: JP)
  Receive Date: 20130925
  Receipt Date: 20130925
  Transmission Date: 20140515
  Serious: Yes (Other)
  Sender: FDA-Public Use
  Company Number: JP-JNJFOC-20130911979

PATIENT
  Age: 62 Year
  Sex: Male
  Weight: 73 kg

DRUGS (9)
  1. STELARA [Suspect]
     Indication: PSORIASIS
     Route: 058
     Dates: start: 20111228, end: 20111228
  2. STELARA [Suspect]
     Indication: PSORIASIS
     Route: 058
     Dates: start: 20111014, end: 20111014
  3. STELARA [Suspect]
     Indication: PSORIASIS
     Route: 058
     Dates: start: 20110913, end: 20110913
  4. STELARA [Suspect]
     Indication: PSORIASIS
     Route: 058
     Dates: start: 20120619, end: 20120619
  5. STELARA [Suspect]
     Indication: PSORIASIS
     Route: 058
     Dates: start: 20120911
  6. STELARA [Suspect]
     Indication: PSORIASIS
     Route: 058
     Dates: start: 20120327, end: 20120327
  7. DOVONEX [Concomitant]
     Indication: PSORIASIS
     Dosage: 2-3 G/DAY
     Route: 061
     Dates: start: 2007
  8. DOVONEX [Concomitant]
     Indication: PSORIASIS
     Route: 061
     Dates: start: 20110830
  9. UNISIA [Concomitant]
     Indication: HYPERTENSION
     Route: 048
     Dates: start: 20120518

REACTIONS (1)
  - Hypertension [Recovered/Resolved]
